FAERS Safety Report 10178834 (Version 1)
Quarter: 2014Q2

REPORT INFORMATION
  Report Type: Spontaneous
  Country: AU (occurrence: AU)
  Receive Date: 20140519
  Receipt Date: 20140519
  Transmission Date: 20141212
  Serious: Yes (Hospitalization)
  Sender: FDA-Public Use
  Company Number: AU-009507513-1405AUS007340

PATIENT
  Age: 62 Year
  Sex: Female

DRUGS (2)
  1. MIRTAZAPINE GA [Suspect]
     Dosage: UNK
     Route: 048
  2. SEROQUEL [Suspect]
     Dosage: UNK
     Route: 048
     Dates: start: 20130504, end: 20140112

REACTIONS (2)
  - Lung disorder [Unknown]
  - Liver function test abnormal [Unknown]
